FAERS Safety Report 9949286 (Version 3)
Quarter: 2014Q1

REPORT INFORMATION
  Report Type: Spontaneous
  Country: JP (occurrence: JP)
  Receive Date: 20140304
  Receipt Date: 20140321
  Transmission Date: 20141002
  Serious: Yes (Hospitalization, Other)
  Sender: FDA-Public Use
  Company Number: JP-B.I. PHARMACEUTICALS,INC./RIDGEFIELD-2014-BI-06425NB

PATIENT
  Age: 59 Year
  Sex: Male
  Weight: 73 kg

DRUGS (10)
  1. BI-SIFROL [Suspect]
     Indication: PRODUCT USED FOR UNKNOWN INDICATION
     Dosage: 0.25 MG
     Route: 048
     Dates: start: 200904, end: 20140210
  2. BLOPRESS / CANDESARTAN CILEXETIL [Concomitant]
     Indication: HYPERTENSION
     Dosage: 8 MG
     Route: 048
  3. CYMBALTA [Concomitant]
     Indication: DIABETIC NEUROPATHY
     Dosage: 20 MG
     Route: 048
     Dates: start: 201301
  4. CLOTIAZEPAM / CLOTIAZEPAM [Concomitant]
     Dosage: 30 MG
     Route: 048
     Dates: start: 2007
  5. LYRICA / PREGABALIN [Concomitant]
     Indication: DIABETIC NEUROPATHY
     Dosage: 225 MG
     Route: 048
     Dates: start: 201103
  6. PARIET / SODIUM RABEPRAZOLE [Concomitant]
     Indication: VARICOSE VEIN
     Dosage: 10 MG
     Route: 048
  7. NE-SOFT / TOCOPHEROL NICOTINATE [Concomitant]
     Indication: DIABETIC NEUROPATHY
     Dosage: 600 MG
     Route: 048
  8. MECOBALAMIN / MECOBALAMIN [Concomitant]
     Indication: DIABETIC NEUROPATHY
     Dosage: 1500 MCG
     Route: 048
  9. LANTUS / INSULIN GLARGINE(GENETICAL RECOMBINATION) [Concomitant]
     Indication: DIABETES MELLITUS
     Dosage: 10 U
     Route: 058
  10. NOVORAPID / INSULIN ASPART(GENETICAL RECOMBINATION) [Concomitant]
     Indication: DIABETES MELLITUS
     Dosage: 18 U
     Route: 058

REACTIONS (7)
  - Oesophageal varices haemorrhage [Recovered/Resolved]
  - Sudden onset of sleep [Recovered/Resolved]
  - Sudden onset of sleep [Recovered/Resolved]
  - Sudden onset of sleep [Not Recovered/Not Resolved]
  - Road traffic accident [Recovered/Resolved]
  - Gastroenteritis norovirus [Recovered/Resolved]
  - Off label use [Unknown]
